FAERS Safety Report 17913963 (Version 1)
Quarter: 2020Q2

REPORT INFORMATION
  Report Type: Spontaneous
  Country: FR (occurrence: FR)
  Receive Date: 20200618
  Receipt Date: 20200618
  Transmission Date: 20200714
  Serious: Yes (Hospitalization, Other)
  Sender: FDA-Public Use
  Company Number: FR-PFIZER INC-2020235363

PATIENT
  Age: 16 Year
  Sex: Male

DRUGS (2)
  1. COCAINE [Suspect]
     Active Substance: COCAINE
     Dosage: UNK
     Route: 055
  2. LYRICA [Suspect]
     Active Substance: PREGABALIN
     Dosage: 8 DF
     Route: 048

REACTIONS (4)
  - Off label use [Unknown]
  - Poisoning [Unknown]
  - Somnolence [Unknown]
  - Product use issue [Unknown]
